FAERS Safety Report 8047249-7 (Version None)
Quarter: 2012Q1

REPORT INFORMATION
  Report Type: 
  Country: None (occurrence: None)
  Receive Date: 20120116
  Receipt Date: 20120103
  Transmission Date: 20120608
  Serious: Yes (Other)
  Sender: FDA-Public Use
  Company Number: US-BAYER-2011-112351

PATIENT
  Age: 59 Year
  Sex: Male
  Weight: 98.88 kg

DRUGS (7)
  1. ATENOLOL [Concomitant]
     Indication: HYPERTENSION
  2. OXYCONTIN [Concomitant]
     Indication: PAIN
  3. ACETYLSALICYLIC ACID SRT [Suspect]
     Indication: CARDIAC DISORDER
  4. RIVAROXABAN [Suspect]
     Indication: KNEE ARTHROPLASTY
     Dosage: DOSAGE FORM: TABLET
     Route: 048
     Dates: start: 20110921, end: 20111011
  5. MAXZIDE [Concomitant]
     Indication: HYPERTENSION
  6. ANTIHYPERTENSIVES [Concomitant]
  7. NORCO [Concomitant]
     Indication: PAIN

REACTIONS (4)
  - HAEMATOMA [None]
  - ARTHRALGIA [None]
  - SWELLING [None]
  - MUSCLE SPASMS [None]
